FAERS Safety Report 16902920 (Version 1)
Quarter: 2019Q4

REPORT INFORMATION
  Report Type: Report from Study
  Country: SE (occurrence: SE)
  Receive Date: 20191010
  Receipt Date: 20191010
  Transmission Date: 20200122
  Serious: Yes (Life-Threatening, Hospitalization, Other)
  Sender: FDA-Public Use
  Company Number: SE-ACCORD-156654

PATIENT
  Age: 66 Year
  Sex: Female
  Weight: 60 kg

DRUGS (5)
  1. METHOTREXATE. [Suspect]
     Active Substance: METHOTREXATE
     Indication: PSORIATIC ARTHROPATHY
     Dosage: 7.5 MG, WEEKLY
     Route: 048
     Dates: start: 20040628, end: 20130110
  2. SIMVASTATIN. [Concomitant]
     Active Substance: SIMVASTATIN
     Dosage: 20 MG, 1X/DAY
     Dates: start: 20120209
  3. FOLINIC ACID [Concomitant]
     Active Substance: LEUCOVORIN
     Dosage: 15 MG, 5X/WEEK
  4. ENBREL [Suspect]
     Active Substance: ETANERCEPT
     Indication: RHEUMATOID ARTHRITIS
     Dosage: 50 MG, WEEKLY
     Route: 058
     Dates: start: 20040628, end: 20130126
  5. HYDROCORTISONE. [Concomitant]
     Active Substance: HYDROCORTISONE
     Dosage: UNK

REACTIONS (2)
  - Autoimmune haemolytic anaemia [Recovered/Resolved with Sequelae]
  - Chronic lymphocytic leukaemia [Recovering/Resolving]

NARRATIVE: CASE EVENT DATE: 20130108
